FAERS Safety Report 20014066 (Version 2)
Quarter: 2022Q1

REPORT INFORMATION
  Report Type: Other
  Country: CA (occurrence: CA)
  Receive Date: 20211029
  Receipt Date: 20220302
  Transmission Date: 20220423
  Serious: Yes (Other)
  Sender: FDA-Public Use
  Company Number: CA-INTERCEPT-PM2021003033

PATIENT
  Sex: Female

DRUGS (5)
  1. OCALIVA [Suspect]
     Active Substance: OBETICHOLIC ACID
     Indication: Primary biliary cholangitis
     Dosage: 5 MILLIGRAM, QD
     Route: 048
     Dates: start: 20210422
  2. URSODIOL [Suspect]
     Active Substance: URSODIOL
     Indication: Primary biliary cholangitis
     Dosage: 1000 MILLIGRAM, QD
     Route: 048
     Dates: start: 2019
  3. URSODIOL [Suspect]
     Active Substance: URSODIOL
     Dosage: 500 MILLIGRAM, QD
     Route: 048
  4. URSODIOL [Suspect]
     Active Substance: URSODIOL
     Dosage: 750 MILLIGRAM, QD
     Route: 048
  5. DEXTROAMPHETAMINE [Concomitant]
     Active Substance: DEXTROAMPHETAMINE
     Dosage: UNK

REACTIONS (4)
  - Hepatic fibrosis [Unknown]
  - Increased tendency to bruise [Unknown]
  - Blood alkaline phosphatase increased [Unknown]
  - Drug ineffective [Unknown]

NARRATIVE: CASE EVENT DATE: 20210101
